FAERS Safety Report 20776766 (Version 1)
Quarter: 2022Q2

REPORT INFORMATION
  Report Type: Spontaneous
  Country: US (occurrence: US)
  Receive Date: 20220502
  Receipt Date: 20220502
  Transmission Date: 20220720
  Serious: No
  Sender: FDA-Public Use
  Company Number: US-PFIZER INC-202200635539

PATIENT
  Age: 67 Year
  Sex: Male
  Weight: 95.25 kg

DRUGS (1)
  1. SUTENT [Suspect]
     Active Substance: SUNITINIB MALATE
     Indication: Neoplasm malignant
     Dosage: 50 MG, CYCLIC(14 DAYS AND THEN OFF 7 DAYS)

REACTIONS (5)
  - Paraesthesia [Unknown]
  - Blister [Unknown]
  - Gait disturbance [Unknown]
  - Pain [Unknown]
  - Erythema [Recovering/Resolving]

NARRATIVE: CASE EVENT DATE: 20220401
